FAERS Safety Report 14714655 (Version 2)
Quarter: 2018Q2

REPORT INFORMATION
  Report Type: Spontaneous
  Country: NL (occurrence: NL)
  Receive Date: 20180404
  Receipt Date: 20180409
  Transmission Date: 20180711
  Serious: Yes (Death, Life-Threatening, Hospitalization)
  Sender: FDA-Public Use
  Company Number: NL-PFIZER INC-2018136742

PATIENT
  Age: 18 Year
  Sex: Male
  Weight: 70 kg

DRUGS (4)
  1. ELTROMBOPAG [Concomitant]
     Active Substance: ELTROMBOPAG
     Route: 048
  2. SIROLIMUS. [Suspect]
     Active Substance: SIROLIMUS
     Indication: IMMUNE THROMBOCYTOPENIC PURPURA
     Dosage: 2 MG, 1X/DAY
     Route: 050
     Dates: start: 20171207, end: 20180106
  3. PREDNISON [Concomitant]
     Active Substance: PREDNISONE
     Route: 048
  4. CALCIUMCARBONAAT [Concomitant]
     Route: 050

REACTIONS (2)
  - Coombs positive haemolytic anaemia [Not Recovered/Not Resolved]
  - Brain oedema [Fatal]

NARRATIVE: CASE EVENT DATE: 20180106
